FAERS Safety Report 6067959-0 (Version None)
Quarter: 2009Q1

REPORT INFORMATION
  Report Type: 
  Country: None (occurrence: None)
  Receive Date: 20090206
  Receipt Date: 20090127
  Transmission Date: 20090719
  Serious: No
  Sender: FDA-Public Use
  Company Number: US-JNJFOC-20090107295

PATIENT
  Sex: Female
  Weight: 52.16 kg

DRUGS (2)
  1. DURAGESIC-100 [Suspect]
     Indication: BONE PAIN
     Dosage: TWO 100 UG/HR PATCHES.
     Route: 062
  2. FENTANYL TRANSDERMAL SYSTEM [Suspect]
     Indication: BONE PAIN
     Dosage: TWO 100 UG/HR PATCHES.
     Route: 062

REACTIONS (3)
  - INAPPROPRIATE SCHEDULE OF DRUG ADMINISTRATION [None]
  - VOMITING [None]
  - WRONG TECHNIQUE IN DRUG USAGE PROCESS [None]
